FAERS Safety Report 9660653 (Version 2)
Quarter: 2013Q4

REPORT INFORMATION
  Report Type: Report from Study
  Country: TW (occurrence: TW)
  Receive Date: 20131031
  Receipt Date: 20131031
  Transmission Date: 20140711
  Serious: Yes (Other)
  Sender: FDA-Public Use
  Company Number: TW-ABBVIE-13P-153-1147582-00

PATIENT
  Sex: Female
  Weight: 48.1 kg

DRUGS (3)
  1. HUMIRA [Suspect]
     Indication: RHEUMATOID ARTHRITIS
     Route: 058
     Dates: start: 20090218, end: 20130220
  2. HUMIRA [Suspect]
     Dates: start: 20130220, end: 20130530
  3. MTX [Concomitant]
     Indication: RHEUMATOID ARTHRITIS
     Dosage: 2PC
     Route: 048
     Dates: start: 20121114, end: 20130530

REACTIONS (1)
  - Ovarian neoplasm [Recovered/Resolved]
